FAERS Safety Report 6759267-7 (Version None)
Quarter: 2010Q2

REPORT INFORMATION
  Report Type: 
  Country: None (occurrence: None)
  Receive Date: 20100602
  Receipt Date: 20100515
  Transmission Date: 20101027
  Serious: Yes (Other)
  Sender: FDA-Public Use
  Company Number: 2010AP001024

PATIENT
  Age: 48 Year
  Sex: Female

DRUGS (3)
  1. ALENDRONATE SODIUM [Suspect]
     Dosage: 70 MG;QW
  2. PREDNISONE [Concomitant]
  3. ESTRADIOL [Concomitant]

REACTIONS (3)
  - OSTEOPENIA [None]
  - STRESS FRACTURE [None]
  - TIBIA FRACTURE [None]
